FAERS Safety Report 6026469-7 (Version None)
Quarter: 2009Q1

REPORT INFORMATION
  Report Type: 
  Country: None (occurrence: None)
  Receive Date: 20090102
  Receipt Date: 20081222
  Transmission Date: 20090719
  Serious: Yes (Life-Threatening)
  Sender: FDA-Public Use
  Company Number: JP-PFIZER INC-2008100869

PATIENT

DRUGS (2)
  1. HALCION [Suspect]
     Indication: INSOMNIA
     Dosage: 0.25 MG, 1X/DAY
     Route: 048
     Dates: start: 20080501, end: 20081101
  2. ROHYPNOL [Suspect]
     Indication: INSOMNIA
     Dosage: 2 MG, 1X/DAY
     Dates: start: 20080501

REACTIONS (1)
  - NEUROLEPTIC MALIGNANT SYNDROME [None]
